FAERS Safety Report 8360900-7 (Version None)
Quarter: 2012Q2

REPORT INFORMATION
  Report Type: 
  Country: None (occurrence: None)
  Receive Date: 20120515
  Receipt Date: 20120504
  Transmission Date: 20120825
  Serious: Yes (Death, Hospitalization)
  Sender: FDA-Public Use
  Company Number: DE-BRISTOL-MYERS SQUIBB COMPANY-16417537

PATIENT
  Age: 76 Year
  Sex: Male

DRUGS (10)
  1. METOCLOPRAMIDE [Concomitant]
     Route: 048
  2. POTASSIUM CHLORIDE [Concomitant]
     Dates: start: 20120226, end: 20120316
  3. ACETYLSALICYLIC ACID SRT [Concomitant]
     Route: 048
  4. KALIUM [Concomitant]
     Dates: start: 20120301
  5. IPILIMUMAB [Suspect]
     Indication: MALIGNANT MELANOMA
     Dosage: DRUG INTERRUPTED ON 02-FEB-2012
     Route: 042
     Dates: start: 20111221, end: 20120202
  6. CEFTRIAXONE SODIUM [Concomitant]
     Dates: end: 20120301
  7. TORSEMIDE [Concomitant]
     Route: 048
     Dates: start: 20120216, end: 20120301
  8. HALOPERIDOL [Concomitant]
     Dates: start: 20120216, end: 20120301
  9. METAMIZOLE [Concomitant]
     Route: 048
  10. AMPICILLIN [Concomitant]
     Dates: end: 20120301

REACTIONS (4)
  - NEOPLASM MALIGNANT [None]
  - MENTAL DISORDER DUE TO A GENERAL MEDICAL CONDITION [None]
  - PNEUMONIA [None]
  - DELIRIUM [None]
